FAERS Safety Report 9254869 (Version 2)
Quarter: 2013Q2

REPORT INFORMATION
  Report Type: Report from Study
  Country: MX (occurrence: MX)
  Receive Date: 20130425
  Receipt Date: 20130520
  Transmission Date: 20140414
  Serious: Yes (Hospitalization, Other)
  Sender: FDA-Public Use
  Company Number: PHHY2013MX040855

PATIENT
  Age: 79 Year
  Sex: Male

DRUGS (8)
  1. CO-DIOVAN [Suspect]
     Indication: HYPERTENSION
     Dosage: 1 DF(160/12.5 MG), DAILY
     Route: 048
     Dates: start: 200910
  2. CO-DIOVAN [Suspect]
     Dosage: 1 DF(160/12.5 MG), DAILY
     Route: 048
     Dates: end: 201305
  3. CO-DIOVAN [Suspect]
     Dosage: 320/25 MG
     Dates: start: 201305
  4. ZELMAC [Suspect]
  5. RANISEN [Concomitant]
     Indication: GASTRITIS
     Dosage: 1 DF, DAILY
  6. OMEPRAZOLE (NEXUS) [Concomitant]
  7. AMIODARONA (BRAXAN) [Concomitant]
  8. ASPIRINA [Concomitant]

REACTIONS (4)
  - Hemiplegia [Recovered/Resolved]
  - Asthenia [Recovered/Resolved]
  - Anxiety [Not Recovered/Not Resolved]
  - Syncope [Not Recovered/Not Resolved]
